FAERS Safety Report 6238525-9 (Version None)
Quarter: 2009Q2

REPORT INFORMATION
  Report Type: 
  Country: None (occurrence: None)
  Receive Date: 20090622
  Receipt Date: 20090618
  Transmission Date: 20091009
  Serious: Yes (Hospitalization, Other)
  Sender: FDA-Public Use
  Company Number: US-ASTRAZENECA-2009UW15827

PATIENT
  Age: 63 Year
  Sex: Female

DRUGS (10)
  1. SEROQUEL [Suspect]
     Indication: BIPOLAR DISORDER
     Route: 048
     Dates: start: 19900101
  2. SEROQUEL [Suspect]
     Indication: INSOMNIA
     Route: 048
     Dates: start: 19900101
  3. SEROQUEL [Suspect]
     Indication: HYPOMANIA
     Route: 048
     Dates: start: 19900101
  4. PAXIL CR [Suspect]
     Indication: BIPOLAR DISORDER
     Route: 048
     Dates: start: 19900101
  5. VALTREX [Suspect]
     Indication: HERPES ZOSTER
     Route: 048
     Dates: start: 20000101
  6. FLAXSEED OIL [Concomitant]
     Dates: start: 19900101
  7. CLONAZEPAM [Concomitant]
  8. LOSARTAN POTASSIUM [Concomitant]
  9. LIOTRIX [Concomitant]
  10. TRILAFON [Concomitant]
     Dates: end: 20040101

REACTIONS (14)
  - BRONCHITIS [None]
  - CATARACT [None]
  - CERVICAL VERTEBRAL FRACTURE [None]
  - COMA [None]
  - DRUG DEPENDENCE [None]
  - EMOTIONAL DISORDER [None]
  - HERPES ZOSTER [None]
  - HYPOMANIA [None]
  - INSOMNIA [None]
  - MALAISE [None]
  - PNEUMONIA [None]
  - POST HERPETIC NEURALGIA [None]
  - PYREXIA [None]
  - RENAL FAILURE [None]
